FAERS Safety Report 9627084 (Version 1)
Quarter: 2013Q4

REPORT INFORMATION
  Report Type: Spontaneous
  Country: GB (occurrence: GB)
  Receive Date: 20131016
  Receipt Date: 20131016
  Transmission Date: 20140711
  Serious: Yes (Other)
  Sender: FDA-Public Use
  Company Number: GB-VERTEX PHARMACEUTICALS INC-2013-010420

PATIENT
  Age: 46 Year
  Sex: Male

DRUGS (4)
  1. INCIVO [Suspect]
     Indication: HEPATITIS C
     Route: 048
     Dates: start: 20130114
  2. INCIVO [Suspect]
     Dosage: 1125 MG, UNK
     Route: 048
     Dates: start: 20130107, end: 20130113
  3. PEGINTERFERON ALFA-2A [Suspect]
     Indication: HEPATITIS C
     Dosage: UNK
     Route: 065
     Dates: start: 201301
  4. RIBAVIRIN [Suspect]
     Indication: HEPATITIS C
     Dosage: UNK
     Route: 065
     Dates: start: 201301

REACTIONS (4)
  - Dyspnoea [Not Recovered/Not Resolved]
  - Lethargy [Recovered/Resolved]
  - Pruritus [Unknown]
  - Nausea [Unknown]
